FAERS Safety Report 11715662 (Version 1)
Quarter: 2015Q4

REPORT INFORMATION
  Report Type: Spontaneous
  Country: US (occurrence: US)
  Receive Date: 20151109
  Receipt Date: 20151109
  Transmission Date: 20160304
  Serious: Yes (Other)
  Sender: FDA-Public Use
  Company Number: US-JNJFOC-20151100787

PATIENT
  Age: 11 Year
  Sex: Male

DRUGS (2)
  1. RISPERDAL [Suspect]
     Active Substance: RISPERIDONE
     Indication: DEPRESSION
     Route: 048
     Dates: start: 2002
  2. RISPERDAL [Suspect]
     Active Substance: RISPERIDONE
     Indication: LEARNING DISORDER
     Route: 048
     Dates: start: 2002

REACTIONS (6)
  - Breast enlargement [Unknown]
  - Suicidal ideation [Unknown]
  - Abnormal weight gain [Unknown]
  - Product use issue [Unknown]
  - Depression [Unknown]
  - Off label use [Unknown]

NARRATIVE: CASE EVENT DATE: 2002
